FAERS Safety Report 7990253-5 (Version None)
Quarter: 2011Q4

REPORT INFORMATION
  Report Type: 
  Country: None (occurrence: None)
  Receive Date: 20111219
  Receipt Date: 20110620
  Transmission Date: 20120403
  Serious: No
  Sender: FDA-Public Use
  Company Number: US-ASTRAZENECA-2011SE37471

PATIENT
  Age: 65 Year
  Sex: Female
  Weight: 90.7 kg

DRUGS (9)
  1. METFORMIN HCL [Concomitant]
     Route: 065
  2. CRESTOR [Suspect]
     Indication: BLOOD CHOLESTEROL ABNORMAL
     Route: 048
     Dates: start: 20110101, end: 20110401
  3. QUINAPRIL [Concomitant]
     Route: 065
  4. CARVEDILOL [Concomitant]
     Route: 065
  5. EFFIENT [Concomitant]
     Route: 065
  6. GLYBURIDE [Concomitant]
     Route: 065
  7. HYDROCHLOROTHIAZIDE [Concomitant]
     Route: 065
  8. AMLODIPINE [Concomitant]
     Route: 065
  9. RANITIDINE [Concomitant]
     Route: 065

REACTIONS (5)
  - DECREASED APPETITE [None]
  - MUSCULAR WEAKNESS [None]
  - BLOOD CREATINE PHOSPHOKINASE INCREASED [None]
  - CONFUSIONAL STATE [None]
  - FATIGUE [None]
